FAERS Safety Report 7138435-9 (Version None)
Quarter: 2010Q4

REPORT INFORMATION
  Report Type: 
  Country: None (occurrence: None)
  Receive Date: 20101206
  Receipt Date: 20101123
  Transmission Date: 20110411
  Serious: Yes (Hospitalization)
  Sender: FDA-Public Use
  Company Number: PHHY2010NL76873

PATIENT
  Sex: Male

DRUGS (12)
  1. EXELON [Suspect]
     Indication: DEMENTIA
     Dosage: 6 MG, BID
     Dates: start: 20101031, end: 20101103
  2. EXELON [Suspect]
     Indication: DEMENTIA
     Route: 062
  3. REMINYL                                 /UNK/ [Concomitant]
     Dosage: 16 MG PER TIME
     Dates: start: 20101103
  4. ASPIRIN [Concomitant]
     Dosage: 80 MG, QD
     Dates: start: 20101102
  5. DIOVAN [Concomitant]
     Dosage: 80 MG, QD
     Dates: start: 20101102
  6. FRAXIPARINE [Concomitant]
     Dosage: 2 DF PER DAY
     Dates: start: 20101102
  7. CEDOCARD [Concomitant]
     Dosage: 50 MG, QD
     Dates: start: 20101102
  8. PRAVASTATIN SODIUM [Concomitant]
     Dosage: 40 MG, QD
     Route: 048
     Dates: start: 20101102
  9. SELOKEEN [Concomitant]
     Dosage: 95 MG, QD
     Dates: start: 20101102
  10. HALOPERIDOL [Concomitant]
     Dosage: 3 MG (3 TABLETS) PER TIME
     Route: 048
     Dates: start: 20101101
  11. METRONIDAZOLE [Concomitant]
     Dosage: UNK
     Dates: start: 20101101, end: 20101102
  12. KEFZOL [Concomitant]
     Dosage: 1DF PER TIME
     Dates: start: 20101101, end: 20101102

REACTIONS (4)
  - PAIN IN EXTREMITY [None]
  - PERIPHERAL ARTERIAL OCCLUSIVE DISEASE [None]
  - PERIPHERAL REVASCULARISATION [None]
  - THROMBOSIS [None]
